FAERS Safety Report 19525430 (Version 1)
Quarter: 2021Q3

REPORT INFORMATION
  Report Type: Spontaneous
  Country: US (occurrence: US)
  Receive Date: 20210713
  Receipt Date: 20210713
  Transmission Date: 20211014
  Serious: Yes (Other)
  Sender: FDA-Public Use
  Company Number: None

PATIENT
  Age: 28 Year
  Sex: Male
  Weight: 57.15 kg

DRUGS (1)
  1. CETIRIZINE HYDROCHLORIDE TABLETS 10MG [Suspect]
     Active Substance: CETIRIZINE HYDROCHLORIDE
     Indication: RHINITIS
     Dosage: ?          QUANTITY:1 TABLET(S);?
     Route: 048
     Dates: start: 20120801, end: 20210608

REACTIONS (6)
  - Hypersensitivity [None]
  - Pruritus [None]
  - Eye pruritus [None]
  - Rhinorrhoea [None]
  - Hyperaesthesia [None]
  - Urticaria [None]

NARRATIVE: CASE EVENT DATE: 20210623
